FAERS Safety Report 5601036-5 (Version None)
Quarter: 2008Q1

REPORT INFORMATION
  Report Type: 
  Country: None (occurrence: None)
  Receive Date: 20080124
  Receipt Date: 20080118
  Transmission Date: 20080703
  Serious: Yes (Disabling)
  Sender: FDA-Public Use
  Company Number: US-ROCHE-540325

PATIENT
  Sex: Female
  Weight: 61.2 kg

DRUGS (2)
  1. BONIVA [Suspect]
     Indication: OSTEOPOROSIS
     Route: 048
     Dates: start: 20071210, end: 20080101
  2. UNSPECIFIED OTHER MEDICATION [Concomitant]

REACTIONS (1)
  - ECCHYMOSIS [None]
